FAERS Safety Report 20076837 (Version 1)
Quarter: 2021Q4

REPORT INFORMATION
  Report Type: Report from Study
  Country: US (occurrence: US)
  Receive Date: 20211116
  Receipt Date: 20211116
  Transmission Date: 20220303
  Serious: No
  Sender: FDA-Public Use
  Company Number: US-NOVARTISTESTPH-NVSC2021US261874

PATIENT
  Sex: Male

DRUGS (1)
  1. GLATOPA [Suspect]
     Active Substance: GLATIRAMER ACETATE
     Indication: Multiple sclerosis
     Dosage: 40 MG
     Route: 058

REACTIONS (6)
  - Hypersensitivity [Unknown]
  - Pain [Unknown]
  - Swelling [Unknown]
  - Erythema [Unknown]
  - Flank pain [Unknown]
  - Asthenia [Unknown]
